FAERS Safety Report 11825604 (Version 1)
Quarter: 2015Q4

REPORT INFORMATION
  Report Type: Spontaneous
  Country: US (occurrence: US)
  Receive Date: 20151211
  Receipt Date: 20151211
  Transmission Date: 20160305
  Serious: No
  Sender: FDA-Public Use
  Company Number: US-JNJFOC-20150720944

PATIENT
  Age: 83 Year
  Sex: Male

DRUGS (2)
  1. IMBRUVICA [Suspect]
     Active Substance: IBRUTINIB
     Indication: CHRONIC LYMPHOCYTIC LEUKAEMIA
     Route: 048
     Dates: start: 20150603
  2. KEFLEX [Concomitant]
     Active Substance: CEPHALEXIN

REACTIONS (7)
  - Muscular weakness [Unknown]
  - Blood viscosity abnormal [Unknown]
  - Rash erythematous [Not Recovered/Not Resolved]
  - Fatigue [Unknown]
  - Constipation [Unknown]
  - Rash [Unknown]
  - Laceration [Unknown]

NARRATIVE: CASE EVENT DATE: 2015
